FAERS Safety Report 6105208-5 (Version None)
Quarter: 2009Q1

REPORT INFORMATION
  Report Type: 
  Country: None (occurrence: None)
  Receive Date: 20090306
  Receipt Date: 20090203
  Transmission Date: 20090719
  Serious: No
  Sender: FDA-Public Use
  Company Number: US-BAYER-200813956BCC

PATIENT
  Age: 70 Year
  Sex: Male
  Weight: 79 kg

DRUGS (7)
  1. ALEVE [Suspect]
     Indication: CANCER PAIN
     Dosage: TOTAL DAILY DOSE: 220 MG  UNIT DOSE: 220 MG
     Route: 048
     Dates: start: 20080922, end: 20080930
  2. METFORMIN [Concomitant]
  3. COUMADIN [Concomitant]
  4. COUMADIN [Concomitant]
  5. DILTIAZEM [Concomitant]
  6. SIMVASTATIN [Concomitant]
  7. ZOLADEX [Concomitant]

REACTIONS (1)
  - NIGHT SWEATS [None]
